FAERS Safety Report 9858751 (Version 1)
Quarter: 2014Q1

REPORT INFORMATION
  Report Type: Spontaneous
  Country: US (occurrence: None)
  Receive Date: 20140130
  Receipt Date: 20140130
  Transmission Date: 20141002
  Serious: No
  Sender: FDA-Public Use
  Company Number: None

PATIENT
  Age: 78 Year
  Sex: 0
  Weight: 59.5 kg

DRUGS (1)
  1. THYROXINE [Suspect]
     Route: 048
     Dates: start: 201305, end: 201311

REACTIONS (6)
  - Dizziness [None]
  - Dizziness [None]
  - Diarrhoea [None]
  - Hypertension [None]
  - Hypotension [None]
  - Dyspnoea [None]
